FAERS Safety Report 6192322-1 (Version None)
Quarter: 2009Q2

REPORT INFORMATION
  Report Type: 
  Country: None (occurrence: None)
  Receive Date: 20090515
  Receipt Date: 20090415
  Transmission Date: 20091009
  Serious: Yes (Death, Hospitalization)
  Sender: FDA-Public Use
  Company Number: US-GENENTECH-283099

PATIENT
  Sex: Male

DRUGS (2)
  1. RANIBIZUMAB [Suspect]
     Indication: MACULAR DEGENERATION
     Dosage: 6 MG/M2, UNK
     Route: 031
     Dates: start: 20090113
  2. VISUDYNE [Suspect]
     Indication: MACULAR DEGENERATION
     Dosage: UNK
     Dates: start: 20090113

REACTIONS (1)
  - DEATH [None]
